FAERS Safety Report 5822933-1 (Version None)
Quarter: 2008Q3

REPORT INFORMATION
  Report Type: 
  Country: None (occurrence: None)
  Receive Date: 20080724
  Receipt Date: 20080724
  Transmission Date: 20090109
  Serious: No
  Sender: FDA-Public Use
  Company Number: None

PATIENT
  Sex: Female
  Weight: 138.8007 kg

DRUGS (3)
  1. NORVASC [Suspect]
     Indication: HYPERTENSION
     Dosage: 10MG DAILY PO
     Route: 048
     Dates: start: 20040510
  2. SULAR [Suspect]
     Dosage: DAILY PO
     Route: 048
     Dates: start: 20040510
  3. CARDIZEM [Suspect]
     Dosage: DAILY PO
     Route: 048
     Dates: start: 20040510

REACTIONS (2)
  - DERMATITIS ALLERGIC [None]
  - PRURITUS [None]
